FAERS Safety Report 11036841 (Version 1)
Quarter: 2015Q2

REPORT INFORMATION
  Report Type: Spontaneous
  Country: US (occurrence: None)
  Receive Date: 20150415
  Receipt Date: 20150415
  Transmission Date: 20150821
  Serious: Yes (Disabling)
  Sender: FDA-Public Use
  Company Number: None

PATIENT
  Age: 79 Day
  Sex: Male
  Weight: 56.7 kg

DRUGS (12)
  1. PLAQUENIL [Concomitant]
     Active Substance: HYDROXYCHLOROQUINE SULFATE
  2. CELEBREX [Concomitant]
     Active Substance: CELECOXIB
  3. MULTIVITAMINS [Concomitant]
     Active Substance: VITAMINS
  4. D3 [Concomitant]
     Active Substance: 25-HYDROXYCHOLECALCIFEROL, 5-TRANS-
  5. VITAMIN B12 [Concomitant]
     Active Substance: CYANOCOBALAMIN
  6. COSOPT [Concomitant]
     Active Substance: DORZOLAMIDE HYDROCHLORIDE\TIMOLOL MALEATE
  7. E [Concomitant]
  8. IRON [Concomitant]
     Active Substance: IRON
  9. KLOR-CON M10 [Concomitant]
     Active Substance: POTASSIUM CHLORIDE
  10. CELEBREX [Suspect]
     Active Substance: CELECOXIB
     Indication: OSTEOARTHRITIS
     Dosage: 2
     Route: 048
     Dates: start: 20150101, end: 20150414
  11. CELEBREX [Suspect]
     Active Substance: CELECOXIB
     Indication: RHEUMATOID ARTHRITIS
     Dosage: 2
     Route: 048
     Dates: start: 20150101, end: 20150414
  12. LISINOPRIL. [Concomitant]
     Active Substance: LISINOPRIL

REACTIONS (8)
  - Gait disturbance [None]
  - Diarrhoea [None]
  - Drug ineffective [None]
  - Activities of daily living impaired [None]
  - Irritable bowel syndrome [None]
  - Dysgraphia [None]
  - Product substitution issue [None]
  - Pain in extremity [None]

NARRATIVE: CASE EVENT DATE: 20150414
